FAERS Safety Report 5963290-X (Version None)
Quarter: 2008Q4

REPORT INFORMATION
  Report Type: 
  Country: None (occurrence: None)
  Receive Date: 20081124
  Receipt Date: 20081118
  Transmission Date: 20090506
  Serious: Yes (Hospitalization)
  Sender: FDA-Public Use
  Company Number: US-ELI_LILLY_AND_COMPANY-US200811004890

PATIENT
  Sex: Female

DRUGS (1)
  1. HUMULIN 70/30 [Suspect]

REACTIONS (7)
  - BREAST DISORDER [None]
  - BREAST MASS [None]
  - DIABETIC NEUROPATHY [None]
  - DIZZINESS [None]
  - FATIGUE [None]
  - LOCAL SWELLING [None]
  - PAIN IN EXTREMITY [None]
